FAERS Safety Report 9571427 (Version 2)
Quarter: 2013Q4

REPORT INFORMATION
  Report Type: Spontaneous
  Country: US (occurrence: US)
  Receive Date: 20131001
  Receipt Date: 20131001
  Transmission Date: 20140711
  Serious: Yes (Congenital Anomaly, Other)
  Sender: FDA-Public Use
  Company Number: US-ABBVIE-12P-163-0967934-00

PATIENT
  Sex: Female

DRUGS (2)
  1. SYNTHROID [Suspect]
     Indication: MATERNAL EXPOSURE TIMING UNSPECIFIED
     Route: 064
  2. SYNTHROID [Suspect]
     Route: 063

REACTIONS (6)
  - Ankyloglossia congenital [Recovered/Resolved]
  - Foetal exposure during pregnancy [Unknown]
  - Feeding disorder neonatal [Recovered/Resolved]
  - Exposure during breast feeding [Unknown]
  - Breech presentation [Recovered/Resolved]
  - Amniocentesis abnormal [Not Recovered/Not Resolved]
